FAERS Safety Report 19118413 (Version 3)
Quarter: 2025Q4

REPORT INFORMATION
  Report Type: Spontaneous
  Country: US (occurrence: US)
  Receive Date: 20210409
  Receipt Date: 20251111
  Transmission Date: 20260117
  Serious: Yes (Death, Hospitalization, Other)
  Sender: TEVA
  Company Number: US-TEVA-2021-US-1897423

PATIENT
  Age: 68 Year
  Sex: Male
  Weight: 102.51 kg

DRUGS (24)
  1. HYDROCHLOROTHIAZIDE\VALSARTAN [Suspect]
     Active Substance: HYDROCHLOROTHIAZIDE\VALSARTAN
     Indication: Hypertension
     Dosage: DOSAGE TEXT: 320MG/12.5MG,  ACTAVIS
     Route: 048
     Dates: start: 20171222, end: 20180525
  2. MELOXICAM [Concomitant]
     Active Substance: MELOXICAM
     Indication: Arthritis
     Route: 048
     Dates: start: 2010, end: 2019
  3. LEVOTHYROXINE [Concomitant]
     Active Substance: LEVOTHYROXINE
     Indication: Hypothyroidism
     Route: 048
     Dates: start: 2010, end: 2019
  4. CYCLOBENZAPRINE [Concomitant]
     Active Substance: CYCLOBENZAPRINE
     Indication: Muscle spasms
     Dosage: TIME INTERVAL: AS NECESSARY
     Route: 048
     Dates: start: 2010, end: 2019
  5. ATORVASTATIN [Concomitant]
     Active Substance: ATORVASTATIN
     Indication: Blood cholesterol increased
     Route: 048
     Dates: start: 2013, end: 2019
  6. AMLODIPINE BESYLATE [Concomitant]
     Active Substance: AMLODIPINE BESYLATE
     Indication: Hypertension
     Route: 048
     Dates: start: 2014, end: 2019
  7. ALLOPURINOL [Concomitant]
     Active Substance: ALLOPURINOL
     Indication: Prophylaxis
     Route: 048
     Dates: start: 2010, end: 2019
  8. VIAGRA [Concomitant]
     Active Substance: SILDENAFIL CITRATE
     Indication: Erectile dysfunction
     Dosage: TIME INTERVAL: AS NECESSARY
     Dates: start: 2013, end: 2015
  9. CIALIS [Concomitant]
     Active Substance: TADALAFIL
     Indication: Erectile dysfunction
     Dosage: TIME INTERVAL: AS NECESSARY
     Route: 048
     Dates: start: 2010, end: 2018
  10. HYDROCHLOROTHIAZIDE\VALSARTAN [Suspect]
     Active Substance: HYDROCHLOROTHIAZIDE\VALSARTAN
     Indication: Hypertension
     Dosage: DOSAGE TEXT: 160MG/12.5MG?VALSARTAN W/HYDROCHLOROTHIAZIDE MYLAN
     Route: 065
     Dates: start: 20120922, end: 20140116
  11. HYDROCHLOROTHIAZIDE\VALSARTAN [Suspect]
     Active Substance: HYDROCHLOROTHIAZIDE\VALSARTAN
     Indication: Hypertension
     Dosage: DOSAGE TEXT: 320MG/12.5MG
     Route: 065
     Dates: start: 20140106, end: 20150129
  12. HYDROCHLOROTHIAZIDE\VALSARTAN [Suspect]
     Active Substance: HYDROCHLOROTHIAZIDE\VALSARTAN
     Indication: Hypertension
     Dosage: DOSAGE TEXT: 320MG/12.5MG?VALSARTAN W/HYDROCHLOROTHIAZIDE AUROBINDO
     Route: 065
     Dates: start: 20150131, end: 20160127
  13. FARXIGA [Concomitant]
     Active Substance: DAPAGLIFLOZIN PROPANEDIOL
     Indication: Diabetes mellitus
     Dosage: DOSAGE TEXT: WITH METFORMIN
     Route: 048
  14. FLAGYL [Concomitant]
     Active Substance: METRONIDAZOLE\METRONIDAZOLE HYDROCHLORIDE
     Dosage: DOSAGE TEXT: FOR 10 DAYS
     Route: 048
  15. ACETAMINOPHEN\HYDROCODONE [Concomitant]
     Active Substance: ACETAMINOPHEN\HYDROCODONE
     Dosage: DOSAGE TEXT: 7.5MG/325MG
     Route: 048
  16. TAMSULOSIN [Concomitant]
     Active Substance: TAMSULOSIN
     Indication: Dysuria
     Dosage: DOSAGE TEXT: IN LATE EVENING
  17. COLCRYS [Concomitant]
     Active Substance: COLCHICINE
     Dosage: TIME INTERVAL: AS NECESSARY
  18. TRIAMCINOLONE ACETONIDE [Concomitant]
     Active Substance: TRIAMCINOLONE ACETONIDE
     Dosage: DOSAGE TEXT: 1 SPRAY EVERYDAY
     Route: 045
  19. ZETONNA [Concomitant]
     Active Substance: CICLESONIDE
     Indication: Rhinitis allergic
     Dosage: DOSAGE TEXT: 1 PUFF IN EACH NOSTRIL EVERYDAY
     Route: 045
  20. VITAMIN C [Concomitant]
     Active Substance: ASCORBIC ACID
     Indication: Routine health maintenance
     Dates: end: 201904
  21. VITAMIN D3 [Concomitant]
     Active Substance: CHOLECALCIFEROL
     Indication: Routine health maintenance
     Dates: end: 201904
  22. VITAMIN B12 [Concomitant]
     Active Substance: CYANOCOBALAMIN
     Indication: Routine health maintenance
     Dates: end: 201904
  23. METFORMIN [Concomitant]
     Active Substance: METFORMIN HYDROCHLORIDE
     Indication: Diabetes mellitus
     Route: 048
     Dates: start: 2011, end: 2019
  24. LOSARTAN [Suspect]
     Active Substance: LOSARTAN
     Indication: Product used for unknown indication
     Route: 065

REACTIONS (2)
  - Adenocarcinoma gastric stage IV [Fatal]
  - Hepatic cancer [Fatal]
